FAERS Safety Report 6371928-0 (Version None)
Quarter: 2009Q3

REPORT INFORMATION
  Report Type: 
  Country: None (occurrence: None)
  Receive Date: 20090916
  Receipt Date: 20090916
  Transmission Date: 20100115
  Serious: Yes (Hospitalization)
  Sender: FDA-Public Use
  Company Number: None

PATIENT
  Sex: Male
  Weight: 77.7 kg

DRUGS (2)
  1. TEMOZOLOMIDE [Suspect]
     Indication: ACUTE MYELOID LEUKAEMIA
     Dosage: TEMOZOLOMIDE QD PO
     Route: 048
     Dates: start: 20090829, end: 20090912
  2. TEMOZOLOMIDE [Suspect]
     Indication: ACUTE MYELOID LEUKAEMIA
     Dosage: TEMOZOLOMIDE QD PO
     Route: 048
     Dates: start: 20090913, end: 20090914

REACTIONS (4)
  - CREPITATIONS [None]
  - DRY SKIN [None]
  - FEBRILE NEUTROPENIA [None]
  - SKIN WARM [None]
